FAERS Safety Report 4731636-6 (Version None)
Quarter: 2005Q3

REPORT INFORMATION
  Report Type: 
  Country: None (occurrence: None)
  Receive Date: 20050725
  Receipt Date: 20041221
  Transmission Date: 20060218
  Serious: Yes (Life-Threatening, Disabling)
  Sender: FDA-Public Use
  Company Number: WAES 0412USA02637

PATIENT
  Age: 71 Year
  Sex: Male

DRUGS (6)
  1. VIOXX [Suspect]
     Indication: OSTEOARTHRITIS
     Dosage: PO
     Route: 048
     Dates: start: 19990101, end: 20040930
  2. AMARYL [Concomitant]
  3. AVANDIA [Concomitant]
  4. SMZ-TMP [Concomitant]
  5. LISINOPRIL [Concomitant]
  6. MECLIZINE [Concomitant]

REACTIONS (1)
  - HYPERTENSION [None]
